FAERS Safety Report 4554388-1 (Version None)
Quarter: 2005Q1

REPORT INFORMATION
  Report Type: 
  Country: None (occurrence: None)
  Receive Date: 20050118
  Receipt Date: 20050106
  Transmission Date: 20050727
  Serious: Yes (Hospitalization)
  Sender: FDA-Public Use
  Company Number: JP-JNJFOC-20050101269

PATIENT
  Age: 69 Year
  Sex: Male

DRUGS (12)
  1. OFLOCET [Suspect]
     Indication: STAPHYLOCOCCAL INFECTION
     Route: 049
     Dates: start: 20040630, end: 20040712
  2. RIFADIN [Suspect]
     Indication: STAPHYLOCOCCAL INFECTION
     Route: 049
     Dates: start: 20040630, end: 20040710
  3. LASILIX [Concomitant]
     Route: 049
  4. ZYLORIC [Concomitant]
     Route: 049
  5. LEVOTHYROX [Concomitant]
     Route: 049
  6. BURINEX [Concomitant]
     Route: 049
  7. DIFFU K [Concomitant]
     Route: 049
  8. LEXOMIL [Concomitant]
     Route: 049
  9. OMEPRAZOLE [Concomitant]
     Route: 049
  10. ACTRAPID [Concomitant]
     Route: 058
  11. CALCIPARINE [Concomitant]
     Route: 058
  12. FUNGIZONE [Concomitant]
     Route: 049

REACTIONS (4)
  - CHOLESTASIS [None]
  - DERMATITIS BULLOUS [None]
  - HEPATITIS [None]
  - PURPURA [None]
